FAERS Safety Report 21296062 (Version 3)
Quarter: 2023Q1

REPORT INFORMATION
  Report Type: Report from Study
  Country: GB (occurrence: GB)
  Receive Date: 20220906
  Receipt Date: 20230202
  Transmission Date: 20230417
  Serious: Yes (Other)
  Sender: FDA-Public Use
  Company Number: GB-NOVARTISPH-NVSC2022GB195883

PATIENT
  Age: 52 Year
  Sex: Male

DRUGS (1)
  1. OMNITROPE [Suspect]
     Active Substance: SOMATROPIN
     Indication: Growth hormone deficiency
     Dosage: 0.3 MG, QD
     Route: 058
     Dates: start: 202208

REACTIONS (4)
  - Diabetes mellitus [Unknown]
  - Mental disorder [Unknown]
  - Device dispensing error [Unknown]
  - Inappropriate schedule of product administration [Unknown]
